FAERS Safety Report 11649344 (Version 3)
Quarter: 2015Q4

REPORT INFORMATION
  Report Type: Report from Study
  Country: US (occurrence: US)
  Receive Date: 20151021
  Receipt Date: 20151027
  Transmission Date: 20160304
  Serious: Yes (Life-Threatening, Hospitalization)
  Sender: FDA-Public Use
  Company Number: US-JNJFOC-20151006716

PATIENT
  Age: 83 Year
  Sex: Male
  Weight: 97.52 kg

DRUGS (1)
  1. USTEKINUMAB [Suspect]
     Active Substance: USTEKINUMAB
     Indication: PSORIASIS
     Route: 058
     Dates: start: 200912

REACTIONS (7)
  - Wound [Recovered/Resolved]
  - Accelerated idioventricular rhythm [Recovered/Resolved]
  - Lumbar vertebral fracture [Recovered/Resolved]
  - Atrial fibrillation [Recovered/Resolved]
  - Animal bite [Recovered/Resolved]
  - Constipation [Recovered/Resolved]
  - Myasthenia gravis [Recovered/Resolved]

NARRATIVE: CASE EVENT DATE: 20151004
